FAERS Safety Report 23919585 (Version 1)
Quarter: 2024Q2

REPORT INFORMATION
  Report Type: Spontaneous
  Country: US (occurrence: None)
  Receive Date: 20240529
  Receipt Date: 20240529
  Transmission Date: 20240716
  Serious: Yes (Other)
  Sender: FDA-Public Use
  Company Number: None

PATIENT
  Sex: Female

DRUGS (1)
  1. SPRAVATO [Suspect]
     Active Substance: ESKETAMINE
     Indication: Major depression
     Dosage: 84 MG ONCE A WEEK NASAL ?
     Route: 045
     Dates: start: 20240213

REACTIONS (4)
  - Cerebrovascular accident [None]
  - Blood pressure increased [None]
  - Crying [None]
  - Feeling abnormal [None]
